FAERS Safety Report 13959053 (Version 1)
Quarter: 2017Q3

REPORT INFORMATION
  Report Type: Spontaneous
  Country: US (occurrence: US)
  Receive Date: 20170911
  Receipt Date: 20170911
  Transmission Date: 20171128
  Serious: Yes (Other)
  Sender: FDA-Public Use
  Company Number: None

PATIENT
  Age: 9 Month
  Sex: Male
  Weight: 10 kg

DRUGS (1)
  1. AMOXICILLIN. [Suspect]
     Active Substance: AMOXICILLIN
     Indication: FOOD ALLERGY
     Dates: start: 20170903, end: 20170909

REACTIONS (7)
  - Rash [None]
  - Rash generalised [None]
  - Laceration [None]
  - Rash pruritic [None]
  - Rash erythematous [None]
  - Rash papular [None]
  - Skin haemorrhage [None]

NARRATIVE: CASE EVENT DATE: 20170910
